FAERS Safety Report 4664688-2 (Version None)
Quarter: 2005Q2

REPORT INFORMATION
  Report Type: 
  Country: None (occurrence: None)
  Receive Date: 20050516
  Receipt Date: 20050412
  Transmission Date: 20051028
  Serious: Yes (Death)
  Sender: FDA-Public Use
  Company Number: 200510069BYL

PATIENT
  Age: 57 Year
  Sex: Male

DRUGS (2)
  1. LEVITRA [Suspect]
     Dosage: ORAL
     Route: 048
  2. INSULIN [Concomitant]

REACTIONS (4)
  - CARDIAC DISORDER [None]
  - FALL [None]
  - MYOCARDIAL INFARCTION [None]
  - VENTRICULAR FIBRILLATION [None]
